FAERS Safety Report 4921063-0 (Version None)
Quarter: 2006Q1

REPORT INFORMATION
  Report Type: 
  Country: None (occurrence: None)
  Receive Date: 20060223
  Receipt Date: 20051122
  Transmission Date: 20060701
  Serious: Yes (Hospitalization)
  Sender: FDA-Public Use
  Company Number: US-MERCK-0511USA03813

PATIENT
  Age: 67 Year
  Sex: Male

DRUGS (2)
  1. VIOXX [Suspect]
     Indication: SHOULDER PAIN
     Route: 048
     Dates: start: 20030116
  2. BEXTRA [Suspect]
     Route: 048
     Dates: start: 20020419

REACTIONS (26)
  - ABDOMINAL WALL MASS [None]
  - ASTHMA [None]
  - BLOOD PRESSURE INCREASED [None]
  - BRAIN STEM SYNDROME [None]
  - CAROTID ARTERY STENOSIS [None]
  - CEREBROVASCULAR ACCIDENT [None]
  - CHEST PAIN [None]
  - CHRONIC OBSTRUCTIVE PULMONARY DISEASE [None]
  - DEPRESSION [None]
  - DIPLOPIA [None]
  - DRY GANGRENE [None]
  - EMPHYSEMA [None]
  - GASTROOESOPHAGEAL REFLUX DISEASE [None]
  - HIGH DENSITY LIPOPROTEIN DECREASED [None]
  - HYPOAESTHESIA [None]
  - INTERMITTENT CLAUDICATION [None]
  - LACUNAR INFARCTION [None]
  - MICROANGIOPATHY [None]
  - MONOPARESIS [None]
  - NON-CARDIAC CHEST PAIN [None]
  - OEDEMA [None]
  - OEDEMA PERIPHERAL [None]
  - PAIN IN EXTREMITY [None]
  - PERIPHERAL VASCULAR DISORDER [None]
  - PULMONARY FIBROSIS [None]
  - TOE AMPUTATION [None]
